FAERS Safety Report 24796278 (Version 1)
Quarter: 2025Q1

REPORT INFORMATION
  Report Type: Spontaneous
  Country: US (occurrence: US)
  Receive Date: 20250101
  Receipt Date: 20250101
  Transmission Date: 20250409
  Serious: No
  Sender: AMGEN
  Company Number: US-AMGEN-USASP2024255176

PATIENT
  Age: 33 Year
  Sex: Female

DRUGS (4)
  1. INFLIXIMAB [Suspect]
     Active Substance: INFLIXIMAB
     Indication: Crohn^s disease
     Route: 065
  2. DAPSONE [Concomitant]
     Active Substance: DAPSONE
     Dosage: 150 MILLIGRAM, QD
  3. DAPSONE [Concomitant]
     Active Substance: DAPSONE
     Dosage: 75 TO 100 MILLIGRAM, QD
  4. COLCHICINE [Concomitant]
     Active Substance: COLCHICINE
     Dosage: 0.6 MILLIGRAM, BID

REACTIONS (1)
  - Therapy partial responder [Unknown]
